FAERS Safety Report 5106164-9 (Version None)
Quarter: 2006Q3

REPORT INFORMATION
  Report Type: 
  Country: None (occurrence: None)
  Receive Date: 20060918
  Receipt Date: 20060907
  Transmission Date: 20061208
  Serious: Yes (Other)
  Sender: FDA-Public Use
  Company Number: PHBS2006IE13626

PATIENT
  Age: 40 Year
  Sex: Female

DRUGS (1)
  1. LAMISIL [Suspect]
     Route: 048

REACTIONS (5)
  - AGEUSIA [None]
  - ANOREXIA [None]
  - DIZZINESS [None]
  - PALPITATIONS [None]
  - SYNCOPE [None]
